FAERS Safety Report 4294106-8 (Version None)
Quarter: 2004Q1

REPORT INFORMATION
  Report Type: 
  Country: None (occurrence: None)
  Receive Date: 20040211
  Receipt Date: 20040203
  Transmission Date: 20041129
  Serious: Yes (Hospitalization)
  Sender: FDA-Public Use
  Company Number: TPA2004A00009

PATIENT
  Age: 58 Year
  Sex: Female
  Weight: 136.0791 kg

DRUGS (10)
  1. ACTOS [Suspect]
     Indication: DIABETES MELLITUS NON-INSULIN-DEPENDENT
     Dosage: 30 MG, 1 IN 1 D, PER ORAL (SEE IMAGE)
     Route: 048
     Dates: start: 20020813
  2. ACTOS [Suspect]
     Indication: INSULIN RESISTANCE
     Dosage: 30 MG, 1 IN 1 D, PER ORAL (SEE IMAGE)
     Route: 048
     Dates: start: 20020813
  3. GLUCOPHAGE (METFORMIN HYDROCHLORIDE) (500 MILLIGRAM) [Concomitant]
  4. HUMULIN [Concomitant]
  5. WARFARIN SODIUM [Concomitant]
  6. ALTACE [Concomitant]
  7. KAY CIEL DURA-TABS [Concomitant]
  8. LASIX [Concomitant]
  9. MAGNESIUM [Concomitant]
  10. PROTONIX [Concomitant]

REACTIONS (11)
  - ANAEMIA [None]
  - BACK PAIN [None]
  - BLOOD MAGNESIUM DECREASED [None]
  - CHEST PAIN [None]
  - CONDITION AGGRAVATED [None]
  - DYSPNOEA [None]
  - FLUID RETENTION [None]
  - SECRETION DISCHARGE [None]
  - SKIN ULCER [None]
  - URINARY TRACT INFECTION [None]
  - WEIGHT INCREASED [None]
